FAERS Safety Report 23449693 (Version 2)
Quarter: 2024Q1

REPORT INFORMATION
  Report Type: Spontaneous
  Country: US (occurrence: None)
  Receive Date: 20240129
  Receipt Date: 20240327
  Transmission Date: 20240410
  Serious: No
  Sender: FDA-Public Use
  Company Number: 2023A237471

PATIENT
  Age: 62 Year
  Sex: Female
  Weight: 106.1 kg

DRUGS (9)
  1. BYDUREON BCISE [Suspect]
     Active Substance: EXENATIDE
     Indication: Diabetes mellitus
     Dosage: 2.0MG UNKNOWN
     Route: 058
     Dates: start: 20230801
  2. BYDUREON BCISE [Suspect]
     Active Substance: EXENATIDE
     Indication: Blood glucose fluctuation
     Dosage: 2.0MG UNKNOWN
     Route: 058
     Dates: start: 20230801
  3. BYDUREON BCISE [Suspect]
     Active Substance: EXENATIDE
     Indication: Weight
     Dosage: 2.0MG UNKNOWN
     Route: 058
     Dates: start: 20230801
  4. BYDUREON BCISE [Suspect]
     Active Substance: EXENATIDE
     Indication: Diabetes mellitus
     Dosage: 2.0MG UNKNOWN
     Dates: start: 20230712
  5. BYDUREON BCISE [Suspect]
     Active Substance: EXENATIDE
     Indication: Blood glucose fluctuation
     Dosage: 2.0MG UNKNOWN
     Dates: start: 20230712
  6. BYDUREON BCISE [Suspect]
     Active Substance: EXENATIDE
     Indication: Weight
     Dosage: 2.0MG UNKNOWN
     Dates: start: 20230712
  7. BYDUREON BCISE [Suspect]
     Active Substance: EXENATIDE
     Indication: Diabetes mellitus
     Dosage: 2.0MG UNKNOWN
     Route: 058
     Dates: start: 20230613
  8. BYDUREON BCISE [Suspect]
     Active Substance: EXENATIDE
     Indication: Blood glucose fluctuation
     Dosage: 2.0MG UNKNOWN
     Route: 058
     Dates: start: 20230613
  9. BYDUREON BCISE [Suspect]
     Active Substance: EXENATIDE
     Indication: Weight
     Dosage: 2.0MG UNKNOWN
     Route: 058
     Dates: start: 20230613

REACTIONS (11)
  - Injection site pruritus [Unknown]
  - Injection site nodule [Unknown]
  - Device use issue [Unknown]
  - Wrong technique in device usage process [Unknown]
  - Device leakage [Unknown]
  - Needle issue [Unknown]
  - Cough [Recovered/Resolved]
  - Oropharyngeal pain [Recovered/Resolved]
  - Unevaluable event [Recovered/Resolved]
  - Chills [Recovered/Resolved]
  - Throat tightness [Recovered/Resolved]

NARRATIVE: CASE EVENT DATE: 20230623
